FAERS Safety Report 6571350-8 (Version None)
Quarter: 2010Q1

REPORT INFORMATION
  Report Type: 
  Country: None (occurrence: None)
  Receive Date: 20100205
  Receipt Date: 20100129
  Transmission Date: 20100710
  Serious: Yes (Hospitalization)
  Sender: FDA-Public Use
  Company Number: US-BIOGENIDEC-2010BI003148

PATIENT
  Sex: Female

DRUGS (1)
  1. TYSABRI [Suspect]
     Indication: NEUROMYELITIS OPTICA
     Route: 042
     Dates: start: 20090101

REACTIONS (3)
  - FLUSHING [None]
  - HYPERTENSION [None]
  - SEROTONIN SYNDROME [None]
